FAERS Safety Report 11337617 (Version 1)
Quarter: 2015Q3

REPORT INFORMATION
  Report Type: Spontaneous
  Country: US (occurrence: US)
  Receive Date: 20150803
  Receipt Date: 20150803
  Transmission Date: 20151125
  Serious: Yes (Other)
  Sender: FDA-Public Use
  Company Number: US-ELI_LILLY_AND_COMPANY-US200909004227

PATIENT
  Sex: Male
  Weight: 133.79 kg

DRUGS (5)
  1. HUMALOG MIX                             /SPA/ [Concomitant]
     Indication: DIABETES MELLITUS
     Dosage: 1 D/F, UNK
     Dates: start: 1996
  2. HUMALOG MIX                             /SPA/ [Concomitant]
     Dosage: 1 D/F, UNK
  3. LANTUS [Concomitant]
     Active Substance: INSULIN GLARGINE
     Indication: DIABETES MELLITUS
  4. ZYPREXA ZYDIS [Suspect]
     Active Substance: OLANZAPINE
     Dosage: 5 MG, DAILY (1/D)
     Dates: end: 2006
  5. ZYPREXA ZYDIS [Suspect]
     Active Substance: OLANZAPINE
     Indication: STIFF PERSON SYNDROME
     Dosage: 10 MG, DAILY (1/D)
     Dates: start: 200501

REACTIONS (5)
  - Diabetes mellitus [Not Recovered/Not Resolved]
  - Weight increased [Not Recovered/Not Resolved]
  - Off label use [Unknown]
  - Increased insulin requirement [Not Recovered/Not Resolved]
  - Increased appetite [Recovered/Resolved]
